FAERS Safety Report 22144481 (Version 2)
Quarter: 2023Q4

REPORT INFORMATION
  Report Type: Spontaneous
  Country: IT (occurrence: IT)
  Receive Date: 20230328
  Receipt Date: 20231011
  Transmission Date: 20240109
  Serious: Yes (Other)
  Sender: FDA-Public Use
  Company Number: IT-CELLTRION INC.-2023IT006311

PATIENT

DRUGS (21)
  1. RITUXIMAB [Suspect]
     Active Substance: RITUXIMAB
     Indication: Lymphoma transformation
     Dosage: UNK
     Route: 065
     Dates: start: 20221201, end: 20221201
  2. RITUXIMAB [Suspect]
     Active Substance: RITUXIMAB
     Dosage: UNK
     Route: 065
     Dates: start: 20211201, end: 20220201
  3. RITUXIMAB [Suspect]
     Active Substance: RITUXIMAB
     Dosage: UNK
     Route: 065
     Dates: start: 20221101, end: 20221201
  4. RITUXIMAB [Suspect]
     Active Substance: RITUXIMAB
     Dosage: UNK
     Route: 065
     Dates: start: 20210101, end: 20210701
  5. POLATUZUMAB VEDOTIN [Suspect]
     Active Substance: POLATUZUMAB VEDOTIN
     Indication: Lymphoma transformation
     Dosage: UNK
     Route: 065
     Dates: start: 20221201, end: 20221201
  6. TAFASITAMAB-CXIX [Suspect]
     Active Substance: TAFASITAMAB-CXIX
     Indication: Lymphoma transformation
     Dosage: UNK
     Route: 065
     Dates: start: 20230101, end: 20230201
  7. DEXAMETHASONE [Suspect]
     Active Substance: DEXAMETHASONE
     Indication: Lymphoma transformation
     Dosage: UNK
     Route: 065
     Dates: start: 20211201, end: 20220201
  8. CYCLOPHOSPHAMIDE [Suspect]
     Active Substance: CYCLOPHOSPHAMIDE
     Indication: Lymphoma transformation
     Dosage: UNK
     Route: 065
     Dates: start: 20210101, end: 20210701
  9. OBINUTUZUMAB [Suspect]
     Active Substance: OBINUTUZUMAB
     Indication: Lymphoma transformation
     Dosage: UNK
     Route: 042
     Dates: start: 20220301, end: 20220801
  10. LENALIDOMIDE [Suspect]
     Active Substance: LENALIDOMIDE
     Indication: Lymphoma transformation
     Dosage: UNK
     Route: 065
     Dates: start: 20221201, end: 20221201
  11. LENALIDOMIDE [Suspect]
     Active Substance: LENALIDOMIDE
     Dosage: UNK
     Route: 065
     Dates: start: 20230101, end: 20230201
  12. DOXORUBICIN HYDROCHLORIDE [Suspect]
     Active Substance: DOXORUBICIN HYDROCHLORIDE
     Indication: Lymphoma transformation
     Dosage: UNK
     Route: 065
     Dates: start: 20210101, end: 20210701
  13. MESNA [Suspect]
     Active Substance: MESNA
     Indication: Lymphoma transformation
     Dosage: UNK
     Route: 065
     Dates: start: 20221101, end: 20221201
  14. CISPLATIN [Suspect]
     Active Substance: CISPLATIN
     Indication: Lymphoma transformation
     Dosage: UNK
     Route: 065
     Dates: start: 20211201, end: 20220201
  15. MITOXANTRONE [Suspect]
     Active Substance: MITOXANTRONE HYDROCHLORIDE
     Indication: Lymphoma transformation
     Dosage: UNK
     Route: 065
     Dates: start: 20221101, end: 20221201
  16. GEMCITABINE [Suspect]
     Active Substance: GEMCITABINE
     Indication: Lymphoma transformation
     Dosage: UNK
     Route: 065
     Dates: start: 20211201, end: 20220201
  17. ETOPOSIDE [Suspect]
     Active Substance: ETOPOSIDE
     Indication: Lymphoma transformation
     Dosage: UNK
     Route: 065
     Dates: start: 20221101, end: 20221201
  18. BENDAMUSTINE [Suspect]
     Active Substance: BENDAMUSTINE
     Indication: Lymphoma transformation
     Dosage: UNK
     Route: 065
     Dates: start: 20220301, end: 20220801
  19. PREDNISONE [Suspect]
     Active Substance: PREDNISONE
     Indication: Lymphoma transformation
     Dosage: UNK
     Route: 065
     Dates: start: 20210101, end: 20210701
  20. IFOSFAMIDE [Suspect]
     Active Substance: IFOSFAMIDE
     Indication: Lymphoma transformation
     Dosage: UNK
     Route: 065
     Dates: start: 20221101, end: 20221201
  21. VINCRISTINE [Suspect]
     Active Substance: VINCRISTINE
     Indication: Lymphoma transformation
     Dosage: UNK
     Route: 065
     Dates: start: 20210101, end: 20210701

REACTIONS (3)
  - Follicular lymphoma [Unknown]
  - Disease progression [Unknown]
  - Off label use [Unknown]
